FAERS Safety Report 25585527 (Version 1)
Quarter: 2025Q3

REPORT INFORMATION
  Report Type: Spontaneous
  Country: US (occurrence: US)
  Receive Date: 20250721
  Receipt Date: 20250721
  Transmission Date: 20251021
  Serious: Yes (Other)
  Sender: MYLAN
  Company Number: US-MYLANLABS-2025M1060558

PATIENT
  Age: 52 Year
  Sex: Male

DRUGS (4)
  1. VENLAFAXINE [Suspect]
     Active Substance: VENLAFAXINE HYDROCHLORIDE
     Indication: Narcolepsy
  2. VENLAFAXINE [Suspect]
     Active Substance: VENLAFAXINE HYDROCHLORIDE
  3. MODAFINIL [Suspect]
     Active Substance: MODAFINIL
     Indication: Narcolepsy
  4. MODAFINIL [Suspect]
     Active Substance: MODAFINIL

REACTIONS (4)
  - Circumstance or information capable of leading to medication error [Recovered/Resolved]
  - Drug withdrawal syndrome [Recovered/Resolved]
  - Cataplexy [Recovered/Resolved]
  - Off label use [Unknown]
